FAERS Safety Report 5815175-7 (Version None)
Quarter: 2008Q3

REPORT INFORMATION
  Report Type: 
  Country: None (occurrence: None)
  Receive Date: 20080718
  Receipt Date: 20080709
  Transmission Date: 20090109
  Serious: Yes (Other)
  Sender: FDA-Public Use
  Company Number: GB-ROCHE-574998

PATIENT
  Age: 25 Year
  Sex: Male

DRUGS (1)
  1. PEGASYS [Suspect]
     Indication: DRUG USE FOR UNKNOWN INDICATION
     Dosage: PATIENT STOPPED THE DRUG AFTER FOURTH INJECTION
     Route: 042
     Dates: start: 20080201

REACTIONS (1)
  - LOSS OF CONSCIOUSNESS [None]
